FAERS Safety Report 5690900-7 (Version None)
Quarter: 2008Q2

REPORT INFORMATION
  Report Type: 
  Country: None (occurrence: None)
  Receive Date: 20080401
  Receipt Date: 20080324
  Transmission Date: 20081010
  Serious: Yes (Hospitalization, Other)
  Sender: FDA-Public Use
  Company Number: US-ASTRAZENECA-2007UW02621

PATIENT
  Age: 50 Year
  Sex: Male
  Weight: 97.3 kg

DRUGS (26)
  1. SEROQUEL [Suspect]
     Indication: SCHIZOAFFECTIVE DISORDER
     Route: 048
     Dates: start: 20000601
  2. SEROQUEL [Suspect]
     Indication: MENTAL DISORDER
     Route: 048
     Dates: start: 20000601
  3. SEROQUEL [Suspect]
     Route: 048
     Dates: start: 20000629, end: 20040709
  4. SEROQUEL [Suspect]
     Route: 048
     Dates: start: 20000629, end: 20040709
  5. SEROQUEL [Suspect]
     Route: 048
     Dates: start: 20000629, end: 20040709
  6. SEROQUEL [Suspect]
     Route: 048
     Dates: start: 20000629, end: 20040709
  7. SEROQUEL [Suspect]
     Route: 048
     Dates: start: 20040708, end: 20040724
  8. SEROQUEL [Suspect]
     Route: 048
     Dates: start: 20040708, end: 20040724
  9. SEROQUEL [Suspect]
     Route: 048
     Dates: start: 20040723, end: 20041023
  10. SEROQUEL [Suspect]
     Route: 048
     Dates: start: 20040723, end: 20041023
  11. SEROQUEL [Suspect]
     Route: 048
     Dates: start: 20040427
  12. SEROQUEL [Suspect]
     Route: 048
     Dates: start: 20040427
  13. HALDOL [Concomitant]
  14. RISPERDAL [Concomitant]
     Dates: start: 20000228
  15. RISPERDAL [Concomitant]
     Dosage: 2-3 MG BID
     Dates: start: 20000303, end: 20000313
  16. ZYPREXA [Concomitant]
     Indication: SCHIZOPHRENIA
     Dates: start: 19980107
  17. ENALAPRIL MALEATE [Concomitant]
     Dates: start: 20040708, end: 20041008
  18. REMERON [Concomitant]
     Dates: start: 20040723, end: 20041023
  19. REMERON [Concomitant]
     Dates: start: 20040427
  20. WELLBUTRIN [Concomitant]
     Dates: start: 20040427
  21. THORAZINE [Concomitant]
  22. CELEXA [Concomitant]
  23. LISINOPRIL [Concomitant]
  24. HYDROCHLOROTHIAZIDE [Concomitant]
  25. MOTRIN [Concomitant]
  26. ALLEGY MEDS [Concomitant]

REACTIONS (17)
  - ASTHENIA [None]
  - BACK PAIN [None]
  - BLOOD CHOLESTEROL INCREASED [None]
  - CONVULSION [None]
  - DEPRESSION [None]
  - DIZZINESS [None]
  - ERECTILE DYSFUNCTION [None]
  - FEELING JITTERY [None]
  - OBESITY [None]
  - PANIC ATTACK [None]
  - SCHIZOPHRENIA [None]
  - SOMNOLENCE [None]
  - SPINAL DISORDER [None]
  - TREMOR [None]
  - TYPE 2 DIABETES MELLITUS [None]
  - VISUAL ACUITY REDUCED [None]
  - WEIGHT DECREASED [None]
